FAERS Safety Report 4991668-X (Version None)
Quarter: 2006Q2

REPORT INFORMATION
  Report Type: 
  Country: None (occurrence: None)
  Receive Date: 20060504
  Receipt Date: 20060427
  Transmission Date: 20061013
  Serious: Yes (Other)
  Sender: FDA-Public Use
  Company Number: FR-AVENTIS-200611625FR

PATIENT
  Sex: Male

DRUGS (1)
  1. LOVENOX [Suspect]
     Indication: PROSTATE CANCER
     Route: 058
     Dates: start: 20060406

REACTIONS (1)
  - THROMBOCYTHAEMIA [None]
